FAERS Safety Report 14645864 (Version 3)
Quarter: 2018Q2

REPORT INFORMATION
  Report Type: Other
  Country: FR (occurrence: FR)
  Receive Date: 20180316
  Receipt Date: 20180621
  Transmission Date: 20180711
  Serious: Yes (Life-Threatening, Other)
  Sender: FDA-Public Use
  Company Number: FR-MACLEODS PHARMACEUTICALS US LTD-MAC2018011219

PATIENT

DRUGS (17)
  1. CARDENSIEL [Suspect]
     Active Substance: BISOPROLOL FUMARATE
     Indication: PRODUCT USED FOR UNKNOWN INDICATION
     Dosage: UNK
     Route: 048
     Dates: end: 20170307
  2. DIFFU K [Suspect]
     Active Substance: POTASSIUM CHLORIDE
     Indication: PRODUCT USED FOR UNKNOWN INDICATION
     Dosage: 4 DF, QD,  CAPSULE
     Route: 048
     Dates: end: 20170307
  3. JANUMET [Suspect]
     Active Substance: METFORMIN HYDROCHLORIDE\SITAGLIPTIN PHOSPHATE
     Indication: DIABETES MELLITUS
     Dosage: 2 DF, QD, COATED TABLET
     Route: 048
     Dates: end: 20170307
  4. LOXEN L P 50 MG [Suspect]
     Active Substance: NICARDIPINE HYDROCHLORIDE
     Indication: HYPERTENSION
     Dosage: 2 DF, QD,PROLONGED-RELEASE CAPSULE
     Route: 048
  5. METFORMIN HYDROCHLORIDE. [Suspect]
     Active Substance: METFORMIN HYDROCHLORIDE
     Indication: DIABETES MELLITUS
     Dosage: 1000 MG, QD
     Route: 048
     Dates: end: 20170307
  6. FUROSEMIDE. [Suspect]
     Active Substance: FUROSEMIDE
     Indication: PRODUCT USED FOR UNKNOWN INDICATION
     Dosage: 80 MG, QD
     Route: 048
     Dates: end: 20170307
  7. PENTOXIFYLLINE. [Suspect]
     Active Substance: PENTOXIFYLLINE
     Indication: ATRIAL FIBRILLATION
     Dosage: 1 DF, QD
     Route: 048
  8. DIGOXINE NATIVELLE 0.25 MG [Suspect]
     Active Substance: DIGOXIN
     Indication: ATRIAL FIBRILLATION
     Dosage: 1 DF, QD, COMPRESSED TABLET
     Route: 048
     Dates: end: 20170307
  9. MONTELUKAST SODIUM. [Suspect]
     Active Substance: MONTELUKAST SODIUM
     Indication: PRODUCT USED FOR UNKNOWN INDICATION
     Dosage: 1 DOSAGE FORM, QD
     Route: 065
     Dates: end: 20170307
  10. GLIMEPIRIDE. [Suspect]
     Active Substance: GLIMEPIRIDE
     Indication: DIABETES MELLITUS
     Dosage: 4 MG, QD
     Route: 048
  11. SIMVASTATINE [Concomitant]
     Active Substance: SIMVASTATIN
     Indication: PRODUCT USED FOR UNKNOWN INDICATION
     Dosage: UNK
     Route: 065
  12. INSPRA [Suspect]
     Active Substance: EPLERENONE
     Indication: PRODUCT USED FOR UNKNOWN INDICATION
     Dosage: 1 DF, QD, COATED TABLET
     Route: 048
     Dates: end: 20170307
  13. PREVISCAN 20 MG [Suspect]
     Active Substance: FLUINDIONE
     Indication: ATRIAL FIBRILLATION
     Dosage: 1 DF, QD, TABLET BREACKABLE
     Route: 048
  14. TAREG 160 MG [Suspect]
     Active Substance: VALSARTAN
     Indication: HYPERTENSION
     Dosage: 2 DF, QD, COATED TABLET
     Route: 048
     Dates: end: 20170307
  15. DOLIPRANE [Concomitant]
     Active Substance: ACETAMINOPHEN
     Indication: PRODUCT USED FOR UNKNOWN INDICATION
     Dosage: UNK
     Route: 065
  16. ALLOPURINOL. [Suspect]
     Active Substance: ALLOPURINOL
     Indication: PRODUCT USED FOR UNKNOWN INDICATION
     Dosage: 1 DF, QD
     Route: 065
  17. DAFLON 500 MG [Suspect]
     Active Substance: DIOSMIN\HESPERIDIN
     Indication: PRODUCT USED FOR UNKNOWN INDICATION
     Dosage: UNK, COATED TABLET
     Route: 048

REACTIONS (7)
  - Ventricular tachycardia [Recovered/Resolved]
  - Hyperkalaemia [Recovered/Resolved]
  - Bradycardia [Recovered/Resolved]
  - Blood lactic acid [Recovered/Resolved]
  - Diarrhoea [Recovered/Resolved]
  - Cardiac arrest [Recovered/Resolved]
  - Acute kidney injury [Recovered/Resolved]

NARRATIVE: CASE EVENT DATE: 20170306
